FAERS Safety Report 6909006-1 (Version None)
Quarter: 2010Q3

REPORT INFORMATION
  Report Type: 
  Country: None (occurrence: None)
  Receive Date: 20100708
  Receipt Date: 20090520
  Transmission Date: 20110219
  Serious: Yes (Life-Threatening, Other)
  Sender: FDA-Public Use
  Company Number: 2008150802

PATIENT
  Age: 28 Year
  Sex: Female
  Weight: 102.5 kg

DRUGS (5)
  1. CHANTIX [Suspect]
     Dates: start: 20080801, end: 20081101
  2. CLARITIN [Concomitant]
  3. SUDAFED 12 HOUR [Concomitant]
  4. ALBUTEROL [Concomitant]
  5. BENADRYL [Concomitant]

REACTIONS (2)
  - SUICIDAL IDEATION [None]
  - SUICIDE ATTEMPT [None]
